FAERS Safety Report 20032297 (Version 1)
Quarter: 2021Q4

REPORT INFORMATION
  Report Type: Spontaneous
  Country: CA (occurrence: CA)
  Receive Date: 20211103
  Receipt Date: 20211103
  Transmission Date: 20220303
  Serious: Yes (Other)
  Sender: FDA-Public Use
  Company Number: CA-PFIZER INC-2017176408

PATIENT
  Age: 35 Year
  Sex: Female

DRUGS (1)
  1. METHOTREXATE SODIUM [Suspect]
     Active Substance: METHOTREXATE SODIUM
     Indication: Rheumatoid arthritis
     Dosage: 1 DF
     Route: 048

REACTIONS (12)
  - Mental disorder [Unknown]
  - Rheumatoid arthritis [Not Recovered/Not Resolved]
  - Amnesia [Unknown]
  - Nausea [Unknown]
  - Feeling abnormal [Unknown]
  - Arthralgia [Unknown]
  - Insomnia [Unknown]
  - Back pain [Unknown]
  - Sitting disability [Unknown]
  - Dysstasia [Unknown]
  - Gait disturbance [Unknown]
  - Pain [Unknown]
